FAERS Safety Report 25589396 (Version 2)
Quarter: 2025Q3

REPORT INFORMATION
  Report Type: Report from Study
  Country: US (occurrence: US)
  Receive Date: 20250722
  Receipt Date: 20250918
  Transmission Date: 20251020
  Serious: No
  Sender: SUNOVION
  Company Number: US-SMPA-2025SPA008621AA

PATIENT
  Age: 74 Year
  Sex: Male

DRUGS (10)
  1. ORGOVYX [Suspect]
     Active Substance: RELUGOLIX
     Indication: Prostate cancer
     Route: 048
  2. ORGOVYX [Suspect]
     Active Substance: RELUGOLIX
     Route: 048
  3. ALLOPURINOL [Concomitant]
     Active Substance: ALLOPURINOL
  4. ASPIRIN [Concomitant]
     Active Substance: ASPIRIN
  5. DOCUSATE [Concomitant]
     Active Substance: DOCUSATE
  6. ZOLPIDEM TARTRATE [Concomitant]
     Active Substance: ZOLPIDEM TARTRATE
  7. VITAMIN D [Concomitant]
     Active Substance: VITAMIN D NOS
  8. VITAMIN E [Concomitant]
     Active Substance: .ALPHA.-TOCOPHEROL
  9. VITAMINS [Concomitant]
     Active Substance: VITAMINS
  10. CALCIUM [Concomitant]
     Active Substance: CALCIUM

REACTIONS (1)
  - Hot flush [Unknown]
